FAERS Safety Report 25240223 (Version 1)
Quarter: 2025Q2

REPORT INFORMATION
  Report Type: Spontaneous
  Country: US (occurrence: None)
  Receive Date: 20250425
  Receipt Date: 20250425
  Transmission Date: 20250717
  Serious: Yes (Other)
  Sender: FDA-CTU
  Company Number: None

PATIENT
  Age: 33 Year
  Sex: Female
  Weight: 97.9 kg

DRUGS (7)
  1. VENOFER [Suspect]
     Active Substance: IRON SUCROSE
     Indication: Iron deficiency
     Route: 042
     Dates: start: 20250422, end: 20250422
  2. Vitamin B-12 1,000 mcg SL daily [Concomitant]
  3. Vitamin B6 20 mg PO daily [Concomitant]
  4. Fiber Gummies 10 mg PO daily [Concomitant]
  5. Heparin 10,000 IU SQ every 12 hours [Concomitant]
     Dates: start: 20250417
  6. Prenatal Vitamin PO daily [Concomitant]
  7. Wellbutrin XL 150 mg PO daily [Concomitant]

REACTIONS (5)
  - Infusion related reaction [None]
  - Nausea [None]
  - Flushing [None]
  - Headache [None]
  - Urticaria [None]

NARRATIVE: CASE EVENT DATE: 20250422
